FAERS Safety Report 7907540-9 (Version None)
Quarter: 2011Q4

REPORT INFORMATION
  Report Type: 
  Country: None (occurrence: None)
  Receive Date: 20111109
  Receipt Date: 20111109
  Transmission Date: 20120403
  Serious: Yes (Other)
  Sender: FDA-Public Use
  Company Number: None

PATIENT
  Sex: Female
  Weight: 36.2878 kg

DRUGS (2)
  1. CIPROFLOXACIN [Suspect]
     Indication: DIVERTICULITIS
     Dosage: 2X DAILY FOR 20 DAYS
     Dates: start: 20110303, end: 20110323
  2. FLAGYL [Suspect]
     Indication: DIVERTICULITIS
     Dosage: 2 X DAILY FOR 21 DAYS
     Dates: start: 20110801

REACTIONS (5)
  - PHOTOSENSITIVITY REACTION [None]
  - RETCHING [None]
  - PRURITUS [None]
  - SKIN EXFOLIATION [None]
  - VOMITING [None]
